FAERS Safety Report 8332154-9 (Version None)
Quarter: 2012Q2

REPORT INFORMATION
  Report Type: 
  Country: None (occurrence: None)
  Receive Date: 20120503
  Receipt Date: 20120427
  Transmission Date: 20120825
  Serious: Yes (Hospitalization)
  Sender: FDA-Public Use
  Company Number: US-AMGEN-USASP2012010971

PATIENT

DRUGS (1)
  1. NEUPOGEN [Suspect]
     Indication: NEUTROPENIA
     Dates: start: 20120212

REACTIONS (2)
  - WHITE BLOOD CELL COUNT DECREASED [None]
  - DRUG INEFFECTIVE [None]
